FAERS Safety Report 7466119-6 (Version None)
Quarter: 2011Q2

REPORT INFORMATION
  Report Type: 
  Country: None (occurrence: None)
  Receive Date: 20110509
  Receipt Date: 20100616
  Transmission Date: 20111010
  Serious: No
  Sender: FDA-Public Use
  Company Number: US-ALEXION-A201000701

PATIENT
  Sex: Male

DRUGS (7)
  1. VITAMIN C                          /00008001/ [Concomitant]
  2. IRON [Concomitant]
  3. SOLIRIS [Suspect]
     Indication: PAROXYSMAL NOCTURNAL HAEMOGLOBINURIA
     Dosage: 600 MG,QW
     Route: 042
     Dates: start: 20090901, end: 20090101
  4. COUMADIN [Concomitant]
     Indication: ANTICOAGULANT THERAPY
     Dosage: 8 MG, QD
  5. FLOMAX [Concomitant]
  6. SOLIRIS [Suspect]
     Dosage: 900 MG, Q2WKS
     Route: 042
     Dates: start: 20091001
  7. ANTIDEPRESSANTS [Concomitant]

REACTIONS (7)
  - LABORATORY TEST ABNORMAL [None]
  - HAEMOGLOBIN DECREASED [None]
  - BLOOD LACTATE DEHYDROGENASE INCREASED [None]
  - FATIGUE [None]
  - HAEMOGLOBINURIA [None]
  - DYSPNOEA [None]
  - ASTHENIA [None]
